FAERS Safety Report 11896774 (Version 2)
Quarter: 2016Q1

REPORT INFORMATION
  Report Type: Report from Study
  Country: DE (occurrence: CL)
  Receive Date: 20160107
  Receipt Date: 20160330
  Transmission Date: 20160526
  Serious: Yes (Other)
  Sender: FDA-Public Use
  Company Number: DE-ACTELION-A-US2016-129578

PATIENT
  Age: 47 Year
  Sex: Female

DRUGS (9)
  1. L-ARGININE HCL [Concomitant]
     Dosage: UNK
  2. VENTAVIS [Suspect]
     Active Substance: ILOPROST
     Indication: PULMONARY HYPERTENSION
     Dosage: 5 MCG, 8/D
     Route: 055
     Dates: start: 20131018
  3. PARACETAMOL [Concomitant]
     Active Substance: ACETAMINOPHEN
     Dosage: UNK
  4. DILTIAZEM [Concomitant]
     Active Substance: DILTIAZEM
  5. SILDENAFIL. [Concomitant]
     Active Substance: SILDENAFIL
     Dosage: UNK
  6. NEBILET [Concomitant]
     Active Substance: NEBIVOLOL
     Dosage: UNK
  7. CLORFENAMINA GI BR [Concomitant]
     Dosage: UNK
  8. NEO-SINTROM [Concomitant]
     Active Substance: ACENOCOUMAROL
     Dosage: UNK
  9. FUROSEMIDE. [Concomitant]
     Active Substance: FUROSEMIDE
     Dosage: UNK

REACTIONS (2)
  - Chest pain [Recovered/Resolved]
  - Angina pectoris [Not Recovered/Not Resolved]

NARRATIVE: CASE EVENT DATE: 20151215
